FAERS Safety Report 8492803-1 (Version None)
Quarter: 2012Q3

REPORT INFORMATION
  Report Type: 
  Country: None (occurrence: None)
  Receive Date: 20120706
  Receipt Date: 20120705
  Transmission Date: 20120928
  Serious: Yes (Other)
  Sender: FDA-Public Use
  Company Number: PL-BAYER-2012-048000

PATIENT
  Age: 65 Year
  Sex: Male

DRUGS (1)
  1. GADAVIST [Suspect]
     Indication: NUCLEAR MAGNETIC RESONANCE IMAGING ABDOMINAL
     Dosage: 9.5 ML, ONCE
     Route: 042
     Dates: start: 20120515, end: 20120515

REACTIONS (8)
  - DRY MOUTH [None]
  - LARYNGOSPASM [None]
  - COLD SWEAT [None]
  - OROPHARYNGEAL PAIN [None]
  - PALLOR [None]
  - DYSPNOEA [None]
  - HEART RATE DECREASED [None]
  - APNOEA [None]
